FAERS Safety Report 8976674 (Version 1)
Quarter: 2012Q4

REPORT INFORMATION
  Report Type: 
  Country: US (occurrence: US)
  Receive Date: 20121219
  Receipt Date: 20121219
  Transmission Date: 20130627
  Serious: No
  Sender: FDA-Public Use
  Company Number: US-AMGEN-USASP2012060537

PATIENT
  Age: 59 Year
  Sex: Female

DRUGS (3)
  1. PROLIA [Suspect]
     Indication: OSTEOPOROSIS POSTMENOPAUSAL
     Dosage: UNK
     Dates: start: 201102
  2. NASAL SALINE [Concomitant]
     Dosage: UNK
  3. FLONASE [Concomitant]
     Dosage: UNK

REACTIONS (4)
  - Pain in jaw [Unknown]
  - Sinus disorder [Unknown]
  - Pain [Unknown]
  - Abdominal discomfort [Unknown]
